FAERS Safety Report 13763094 (Version 1)
Quarter: 2017Q3

REPORT INFORMATION
  Report Type: Spontaneous
  Country: KR (occurrence: KR)
  Receive Date: 20170718
  Receipt Date: 20170718
  Transmission Date: 20171127
  Serious: Yes (Death)
  Sender: FDA-Public Use
  Company Number: KR-ASTRAZENECA-2017SE71927

PATIENT
  Age: 63 Year
  Sex: Female

DRUGS (1)
  1. GEFITINIB. [Suspect]
     Active Substance: GEFITINIB
     Indication: LUNG ADENOCARCINOMA
     Route: 048

REACTIONS (4)
  - Respiratory failure [Fatal]
  - Multiple organ dysfunction syndrome [Fatal]
  - Malignant neoplasm progression [Fatal]
  - Metastases to bone [Fatal]
